FAERS Safety Report 22694237 (Version 9)
Quarter: 2025Q3

REPORT INFORMATION
  Report Type: Spontaneous
  Country: CA (occurrence: CA)
  Receive Date: 20230711
  Receipt Date: 20250701
  Transmission Date: 20251020
  Serious: Yes (Hospitalization)
  Sender: MERCK SHARP & DOHME LLC
  Company Number: None

PATIENT
  Age: 42 Year
  Sex: Male

DRUGS (67)
  1. JANUVIA [Suspect]
     Active Substance: SITAGLIPTIN PHOSPHATE
     Indication: Diabetes mellitus
     Dosage: DOSE DESCRIPTION : 100 MILLIGRAM, 1 EVERY 1 DAYS (QD)?DAILY DOSE : 100 MILLIGRAM
     Route: 048
  2. JANUVIA [Suspect]
     Active Substance: SITAGLIPTIN PHOSPHATE
     Indication: Diabetes mellitus
     Dosage: DOSE DESCRIPTION : 100 MILLIGRAM, 1 EVERY 1 DAYS (QD)?DAILY DOSE : 100 MILLIGRAM
     Route: 048
  3. JANUVIA [Suspect]
     Active Substance: SITAGLIPTIN PHOSPHATE
     Indication: Diabetes mellitus
     Dosage: DOSE DESCRIPTION : 100 MILLIGRAM, 1 EVERY 1 DAYS (QD)?DAILY DOSE : 100 MILLIGRAM
     Route: 048
  4. METFORMIN [Suspect]
     Active Substance: METFORMIN HYDROCHLORIDE
     Route: 048
  5. ROSUVASTATIN [Suspect]
     Active Substance: ROSUVASTATIN
     Route: 048
  6. TRAZODONE [Suspect]
     Active Substance: TRAZODONE HYDROCHLORIDE
     Route: 048
  7. ABILIFY MAINTENA [Suspect]
     Active Substance: ARIPIPRAZOLE
     Indication: Psychotic disorder
     Dosage: DOSE DESCRIPTION : 400 MILLIGRAM, 1 EVERY 1 MONTH?DAILY DOSE : 13.2 MILLIGRAM?REGIMEN DOSE : 400 ...
     Route: 030
  8. AMITRIPTYLINE [Suspect]
     Active Substance: AMITRIPTYLINE
     Indication: Sleep disorder
     Dosage: DOSE DESCRIPTION : 10 MILLIGRAM, 1 EVERY 1 DAYS
     Route: 065
  9. AMITRIPTYLINE [Suspect]
     Active Substance: AMITRIPTYLINE
     Indication: Sleep disorder
     Dosage: DOSE DESCRIPTION : 10 MILLIGRAM, 1 EVERY 1 DAYS (QD)?DAILY DOSE : 10 MILLIGRAM
     Route: 048
  10. APIDRA [Suspect]
     Active Substance: INSULIN GLULISINE
     Indication: Diabetes mellitus
     Dosage: DOSE DESCRIPTION : 2 EVERY 1 DAYS
     Route: 058
  11. APIDRA [Suspect]
     Active Substance: INSULIN GLULISINE
     Indication: Diabetes mellitus
     Dosage: DOSE DESCRIPTION : 2 EVERY 1 DAYS
     Route: 058
  12. APIDRA [Suspect]
     Active Substance: INSULIN GLULISINE
     Indication: Diabetes mellitus
     Dosage: DOSE DESCRIPTION : 1 EVERY 5 DAYS
     Route: 058
  13. APIDRA [Suspect]
     Active Substance: INSULIN GLULISINE
     Indication: Diabetes mellitus
     Dosage: DOSE DESCRIPTION : 2 EVERY 1 DAYS (BID); FORM: SOLUTION SUBCUTANEOUS
     Route: 058
  14. COCAINE [Suspect]
     Active Substance: COCAINE
     Indication: Product used for unknown indication
     Route: 065
  15. DOXEPIN HYDROCHLORIDE [Suspect]
     Active Substance: DOXEPIN HYDROCHLORIDE
     Indication: Sleep disorder
     Dosage: DOSE DESCRIPTION : 10 MILLIGRAM, 1 EVERY 1 DAYS (QD)?DAILY DOSE : 10 MILLIGRAM
     Route: 048
  16. DOXEPIN HYDROCHLORIDE [Suspect]
     Active Substance: DOXEPIN HYDROCHLORIDE
     Indication: Sleep disorder
     Dosage: DOSE DESCRIPTION : 10 MILLIGRAM, 1 EVERY 1 DAY
     Route: 048
  17. DOXEPIN HYDROCHLORIDE [Suspect]
     Active Substance: DOXEPIN HYDROCHLORIDE
     Indication: Sleep disorder
     Route: 065
  18. DOXEPIN HYDROCHLORIDE [Suspect]
     Active Substance: DOXEPIN HYDROCHLORIDE
     Indication: Sleep disorder
     Route: 065
  19. GLICLAZIDE [Suspect]
     Active Substance: GLICLAZIDE
     Indication: Product used for unknown indication
     Dosage: DOSE DESCRIPTION : 30 MILLIGRAM, 2 EVERY 1 DAYS (BID)?DAILY DOSE : 60 MILLIGRAM
     Route: 048
  20. GLICLAZIDE [Suspect]
     Active Substance: GLICLAZIDE
     Indication: Product used for unknown indication
     Dosage: DOSE DESCRIPTION : 60 MILLIGRAM, 2 EVERY 1 DAYS (BID)?DAILY DOSE : 120 MILLIGRAM
     Route: 048
  21. GLICLAZIDE [Suspect]
     Active Substance: GLICLAZIDE
     Indication: Product used for unknown indication
     Dosage: DOSE DESCRIPTION : 30 MILLIGRAM, 2 EVERY 1 DAYS (BID)?DAILY DOSE : 60 MILLIGRAM
     Route: 048
  22. GLICLAZIDE [Suspect]
     Active Substance: GLICLAZIDE
     Indication: Product used for unknown indication
     Dosage: DOSE DESCRIPTION : 60 MILLIGRAM, 2 EVERY 1 DAYS (BID)?DAILY DOSE : 120 MILLIGRAM
     Route: 065
  23. GLICLAZIDE [Suspect]
     Active Substance: GLICLAZIDE
     Indication: Product used for unknown indication
     Route: 048
  24. GLICLAZIDE [Suspect]
     Active Substance: GLICLAZIDE
     Indication: Product used for unknown indication
     Route: 048
  25. GLICLAZIDE [Suspect]
     Active Substance: GLICLAZIDE
     Indication: Product used for unknown indication
     Dosage: DOSE DESCRIPTION : 30 MILLIGRAM, 2 EVERY 1 DAYS (BID)?DAILY DOSE : 60 MILLIGRAM
     Route: 048
  26. GLICLAZIDE [Suspect]
     Active Substance: GLICLAZIDE
     Indication: Product used for unknown indication
     Route: 065
  27. DIVALPROEX SODIUM [Suspect]
     Active Substance: DIVALPROEX SODIUM
     Indication: Product used for unknown indication
     Dosage: DOSE DESCRIPTION : 500 MILLIGRAM, 1 EVERY 12 HOURS (Q12H); TABLET, DELAYED RELEASE?DAILY DOSE : 1...
     Route: 048
  28. DIVALPROEX SODIUM [Suspect]
     Active Substance: DIVALPROEX SODIUM
     Indication: Product used for unknown indication
     Route: 048
  29. DIVALPROEX SODIUM [Suspect]
     Active Substance: DIVALPROEX SODIUM
     Indication: Product used for unknown indication
     Dosage: DOSE DESCRIPTION : 500 MILLIGRAM, 1 EVERY 12 HOURS (Q12H); FORM: UNKNOWN?DAILY DOSE : 1000 MILLIGRAM
     Route: 048
  30. JARDIANCE [Suspect]
     Active Substance: EMPAGLIFLOZIN
     Indication: Diabetes mellitus
     Route: 048
  31. JARDIANCE [Suspect]
     Active Substance: EMPAGLIFLOZIN
     Indication: Diabetes mellitus
     Route: 048
  32. JARDIANCE [Suspect]
     Active Substance: EMPAGLIFLOZIN
     Indication: Diabetes mellitus
     Dosage: DOSE DESCRIPTION : 25 MILLIGRAM, QD?DAILY DOSE : 25 MILLIGRAM
     Route: 048
  33. METHAMPHETAMINE HYDROCHLORIDE [Suspect]
     Active Substance: METHAMPHETAMINE HYDROCHLORIDE
     Indication: Product used for unknown indication
     Route: 065
  34. METHAMPHETAMINE HYDROCHLORIDE [Suspect]
     Active Substance: METHAMPHETAMINE HYDROCHLORIDE
     Indication: Product used for unknown indication
     Route: 065
  35. METFORMIN [Suspect]
     Active Substance: METFORMIN HYDROCHLORIDE
     Indication: Diabetes mellitus
     Dosage: DOSE DESCRIPTION : 500 MG, 1 EVERY 12 HOURS (Q12H)?DAILY DOSE : 1000 MILLIGRAM
     Route: 048
  36. METFORMIN [Suspect]
     Active Substance: METFORMIN HYDROCHLORIDE
     Indication: Diabetes mellitus
     Dosage: DOSE DESCRIPTION : 500 MILLIGRAM, 2 EVERY 1 DAYS (BID)?DAILY DOSE : 1000 MILLIGRAM
     Route: 048
  37. METFORMIN [Suspect]
     Active Substance: METFORMIN HYDROCHLORIDE
     Indication: Diabetes mellitus
     Dosage: DOSE DESCRIPTION : 1 EVERY 5 DAYS?DAILY DOSE : 100 MILLIGRAM?REGIMEN DOSE : 500  MILLIGRAM
     Route: 048
  38. ROSUVASTATIN [Suspect]
     Active Substance: ROSUVASTATIN
     Indication: Blood cholesterol abnormal
     Dosage: DOSE DESCRIPTION : 10 MILLIGRAM, 1 EVERY 1 DAYS (QD); FORM: NOT SPECIFIED?DAILY DOSE : 10 MILLIGRAM
     Route: 048
  39. ROSUVASTATIN [Suspect]
     Active Substance: ROSUVASTATIN
     Indication: Blood cholesterol abnormal
     Dosage: DOSE DESCRIPTION : 10 MILLIGRAM, 1 EVERY 1 DAYS (QD); FORM: NOT SPECIFIED?DAILY DOSE : 10 MILLIGRAM
     Route: 048
  40. SEMAGLUTIDE [Suspect]
     Active Substance: SEMAGLUTIDE
     Indication: Weight decreased
     Dosage: DOSE DESCRIPTION : 1 MILLIGRAM, 1 EVERY 1 WEEKS (QW)?DAILY DOSE : 0.143 MILLIGRAM?REGIMEN DOSE : ...
     Route: 058
  41. SEMAGLUTIDE [Suspect]
     Active Substance: SEMAGLUTIDE
     Indication: Weight decreased
     Route: 065
  42. SEMAGLUTIDE [Suspect]
     Active Substance: SEMAGLUTIDE
     Indication: Weight decreased
     Route: 065
  43. SEMAGLUTIDE [Suspect]
     Active Substance: SEMAGLUTIDE
     Indication: Weight decreased
     Dosage: DOSE DESCRIPTION : 1 EVERY 1 WEEKS (QW)?DAILY DOSE : 0.143 MILLIGRAM?REGIMEN DOSE : 1  MILLIGRAM
     Route: 058
  44. TOPIRAMATE [Suspect]
     Active Substance: TOPIRAMATE
     Indication: Anxiety
     Route: 048
  45. TOPIRAMATE [Suspect]
     Active Substance: TOPIRAMATE
     Indication: Anxiety
     Route: 048
  46. TOPIRAMATE [Suspect]
     Active Substance: TOPIRAMATE
     Indication: Anxiety
     Dosage: DOSE DESCRIPTION : 25 MILLIGRAM, 1 EVERY 1 DAYS (QD)?DAILY DOSE : 25 MILLIGRAM
     Route: 048
  47. TRANDOLAPRIL [Suspect]
     Active Substance: TRANDOLAPRIL
     Indication: Blood pressure abnormal
     Dosage: DOSE DESCRIPTION : 1 MILLIGRAM, 1 EVERY 1 DAYS (QD)?DAILY DOSE : 1 MILLIGRAM
     Route: 048
  48. TRANDOLAPRIL [Suspect]
     Active Substance: TRANDOLAPRIL
     Indication: Blood pressure abnormal
     Route: 048
  49. TOUJEO [Suspect]
     Active Substance: INSULIN GLARGINE
     Indication: Diabetes mellitus
     Dosage: DOSE DESCRIPTION : 25 INTERNATIONAL UNIT, 1 EVERY 1 DAYS (QD)?DAILY DOSE : 25 INTERNATIONAL UNIT
     Route: 058
  50. TOUJEO [Suspect]
     Active Substance: INSULIN GLARGINE
     Indication: Diabetes mellitus
     Dosage: DOSE DESCRIPTION : 25 INTERNATIONAL UNIT, 1 EVERY 1 DAYS (QD)?DAILY DOSE : 25 INTERNATIONAL UNIT
     Route: 058
  51. TRAZODONE [Suspect]
     Active Substance: TRAZODONE HYDROCHLORIDE
     Indication: Sleep disorder
     Route: 048
  52. TRAZODONE [Suspect]
     Active Substance: TRAZODONE HYDROCHLORIDE
     Indication: Sleep disorder
     Route: 048
  53. TRAZODONE [Suspect]
     Active Substance: TRAZODONE HYDROCHLORIDE
     Indication: Sleep disorder
     Dosage: DOSE DESCRIPTION : 50 MILLIGRAM, 1 EVERY 1 DAYS (QD)?DAILY DOSE : 50 MILLIGRAM
     Route: 048
  54. RILPIVIRINE [Suspect]
     Active Substance: RILPIVIRINE
     Indication: HIV infection
     Route: 030
  55. RILPIVIRINE [Suspect]
     Active Substance: RILPIVIRINE
     Indication: HIV infection
     Route: 030
  56. RILPIVIRINE [Suspect]
     Active Substance: RILPIVIRINE
     Indication: HIV infection
     Route: 030
  57. RILPIVIRINE [Suspect]
     Active Substance: RILPIVIRINE
     Indication: HIV infection
     Dosage: DOSE DESCRIPTION : UNK
     Route: 030
  58. SITAGLIPTIN [Suspect]
     Active Substance: SITAGLIPTIN
     Indication: Diabetes mellitus
     Dosage: DOSE DESCRIPTION : 100 MILLIGRAM, 1 EVERY 1 DAY?DAILY DOSE : 100 MILLIGRAM
     Route: 048
  59. ABACAVIR SULFATE\DOLUTEGRAVIR SODIUM\LAMIVUDINE [Concomitant]
     Active Substance: ABACAVIR SULFATE\DOLUTEGRAVIR SODIUM\LAMIVUDINE
     Indication: HIV infection
     Route: 065
  60. ABACAVIR SULFATE\DOLUTEGRAVIR SODIUM\LAMIVUDINE [Concomitant]
     Active Substance: ABACAVIR SULFATE\DOLUTEGRAVIR SODIUM\LAMIVUDINE
     Indication: HIV infection
     Route: 065
  61. EDURANT [Concomitant]
     Active Substance: RILPIVIRINE HYDROCHLORIDE
     Indication: HIV infection
     Route: 048
  62. CABOTEGRAVIR [Concomitant]
     Active Substance: CABOTEGRAVIR
     Indication: HIV infection
     Route: 048
  63. CABOTEGRAVIR [Concomitant]
     Active Substance: CABOTEGRAVIR
     Indication: HIV infection
     Route: 048
  64. CABOTEGRAVIR [Suspect]
     Active Substance: CABOTEGRAVIR
     Indication: HIV infection
     Route: 030
  65. AMITRIPTYLINE HYDROCHLORIDE [Suspect]
     Active Substance: AMITRIPTYLINE HYDROCHLORIDE
     Indication: Sleep disorder
     Route: 065
  66. AMITRIPTYLINE HYDROCHLORIDE [Suspect]
     Active Substance: AMITRIPTYLINE HYDROCHLORIDE
     Indication: Sleep disorder
     Route: 065
  67. VALPROIC ACID [Suspect]
     Active Substance: VALPROIC ACID
     Indication: Product used for unknown indication
     Dosage: DOSE DESCRIPTION : 500 MILLIGRAM, BID / EVERY 12 HOURS?DAILY DOSE : 1000 MILLIGRAM
     Route: 065

REACTIONS (6)
  - Aggression [Recovered/Resolved]
  - Inappropriate schedule of product administration [Recovered/Resolved]
  - Product dose omission issue [Recovered/Resolved]
  - Product use in unapproved indication [Recovered/Resolved]
  - Psychotic disorder [Recovered/Resolved]
  - Substance use [Recovered/Resolved]
